FAERS Safety Report 19981358 (Version 1)
Quarter: 2021Q4

REPORT INFORMATION
  Report Type: Spontaneous
  Country: US (occurrence: US)
  Receive Date: 20211022
  Receipt Date: 20211022
  Transmission Date: 20220303
  Serious: Yes (Hospitalization)
  Sender: FDA-Public Use
  Company Number: US-ROCHE-2938015

PATIENT
  Age: 64 Year
  Sex: Male

DRUGS (1)
  1. ESBRIET [Suspect]
     Active Substance: PIRFENIDONE
     Indication: Idiopathic pulmonary fibrosis
     Dosage: 3 (267 MG) TABLETS TID WITH MEALS ;ONGOING: YES
     Route: 048

REACTIONS (3)
  - Fatigue [Not Recovered/Not Resolved]
  - Epistaxis [Recovered/Resolved with Sequelae]
  - Nasal septum perforation [Recovered/Resolved with Sequelae]

NARRATIVE: CASE EVENT DATE: 20211008
